FAERS Safety Report 20680223 (Version 1)
Quarter: 2022Q2

REPORT INFORMATION
  Report Type: Spontaneous
  Country: US (occurrence: None)
  Receive Date: 20220405
  Receipt Date: 20220405
  Transmission Date: 20220721
  Serious: Yes (unspecified)
  Sender: FDA-Public Use
  Company Number: None

PATIENT
  Age: 42 Year
  Sex: Female
  Weight: 63.45 kg

DRUGS (8)
  1. QULIPTA [Suspect]
     Active Substance: ATOGEPANT
     Indication: Migraine
     Dates: start: 20220316, end: 20220326
  2. SKELAXIN [Concomitant]
     Active Substance: METAXALONE
  3. GABAPENTIN [Concomitant]
     Active Substance: GABAPENTIN
  4. bc pills [Concomitant]
  5. LUNESTA [Concomitant]
     Active Substance: ESZOPICLONE
  6. TIZANIDINE [Concomitant]
     Active Substance: TIZANIDINE
  7. ASPIRIN [Concomitant]
     Active Substance: ASPIRIN
  8. BIOTIN [Concomitant]
     Active Substance: BIOTIN

REACTIONS (2)
  - Hypertension [None]
  - Heart rate increased [None]

NARRATIVE: CASE EVENT DATE: 20220323
